FAERS Safety Report 7676412 (Version 2)
Quarter: 2014Q1

REPORT INFORMATION
  Report Type: Spontaneous
  Country: US (occurrence: US)
  Receive Date: 20101119
  Receipt Date: 20140331
  Transmission Date: 20141002
  Serious: Yes (Death, Other)
  Sender: FDA-Public Use
  Company Number: US-ROXANE LABORATORIES, INC.-2010-RO-01515RO

PATIENT
  Age: 50 Year
  Sex: Male

DRUGS (2)
  1. MERCAPTOPURINE [Suspect]
     Indication: CROHN^S DISEASE
     Route: 065
  2. AZATHIOPRINE [Suspect]
     Indication: CROHN^S DISEASE
     Route: 065

REACTIONS (2)
  - Death [Fatal]
  - Diffuse large B-cell lymphoma [Unknown]
